FAERS Safety Report 8326603-X (Version None)
Quarter: 2012Q2

REPORT INFORMATION
  Report Type: 
  Country: None (occurrence: None)
  Receive Date: 20120501
  Receipt Date: 20120420
  Transmission Date: 20120825
  Serious: Yes (Hospitalization, Other)
  Sender: FDA-Public Use
  Company Number: IE-JNJFOC-20120304968

PATIENT
  Sex: Female

DRUGS (6)
  1. NEXIUM [Concomitant]
  2. ENOXAPARIN SODIUM [Concomitant]
     Indication: THROMBOSIS PROPHYLAXIS
     Route: 058
  3. DICLOFENAC SODIUM [Concomitant]
  4. ACETAMINOPHEN W/ CODEINE [Concomitant]
  5. RIVAROXABAN [Suspect]
     Indication: HIP ARTHROPLASTY
     Route: 048
     Dates: start: 20120223
  6. RIVAROXABAN [Suspect]
     Indication: THROMBOSIS PROPHYLAXIS
     Route: 048
     Dates: start: 20120223

REACTIONS (2)
  - SUBDURAL HAEMATOMA [None]
  - CIRCULATORY COLLAPSE [None]
